FAERS Safety Report 4677740-2 (Version None)
Quarter: 2005Q2

REPORT INFORMATION
  Report Type: 
  Country: None (occurrence: None)
  Receive Date: 20050527
  Receipt Date: 20050511
  Transmission Date: 20051028
  Serious: No
  Sender: FDA-Public Use
  Company Number: 11170

PATIENT
  Sex: Male

DRUGS (5)
  1. METHOTREXATE [Suspect]
     Indication: JUVENILE ARTHRITIS
     Route: 058
  2. NSAIDS [Suspect]
     Indication: JUVENILE ARTHRITIS
  3. STERIODS [Suspect]
     Indication: JUVENILE ARTHRITIS
  4. ETANERCEPT [Concomitant]
     Indication: JUVENILE ARTHRITIS
  5. INFLIXIMAB [Suspect]
     Indication: JUVENILE ARTHRITIS

REACTIONS (13)
  - ADRENAL SUPPRESSION [None]
  - ARTHROPATHY [None]
  - CAMPTODACTYLY ACQUIRED [None]
  - CUSHING'S SYNDROME [None]
  - HIP DEFORMITY [None]
  - HYPERTROPHY [None]
  - NAUSEA [None]
  - OSTEOPOROSIS [None]
  - PERICARDITIS [None]
  - PSEUDOPORPHYRIA [None]
  - SYNOVIAL DISORDER [None]
  - THERAPY NON-RESPONDER [None]
  - VOMITING [None]
